FAERS Safety Report 24731593 (Version 4)
Quarter: 2025Q3

REPORT INFORMATION
  Report Type: Spontaneous
  Country: US (occurrence: US)
  Receive Date: 20241213
  Receipt Date: 20250905
  Transmission Date: 20251020
  Serious: Yes (Hospitalization, Other)
  Sender: DOMPE FARMACEUTICI
  Company Number: US-FARMAPROD-202410-3567

PATIENT
  Age: 50 Year
  Sex: Male

DRUGS (11)
  1. OXERVATE [Suspect]
     Active Substance: CENEGERMIN-BKBJ
     Indication: Neurotrophic keratopathy
     Route: 047
     Dates: start: 20241007
  2. OXERVATE [Suspect]
     Active Substance: CENEGERMIN-BKBJ
     Route: 047
     Dates: start: 20241202
  3. OXERVATE [Suspect]
     Active Substance: CENEGERMIN-BKBJ
  4. CREON [Concomitant]
     Active Substance: PANCRELIPASE AMYLASE\PANCRELIPASE LIPASE\PANCRELIPASE PROTEASE
  5. PREGABALIN [Concomitant]
     Active Substance: PREGABALIN
  6. LOSARTAN POTASSIUM [Concomitant]
     Active Substance: LOSARTAN POTASSIUM
  7. SIMVASTATIN [Concomitant]
     Active Substance: SIMVASTATIN
  8. CLARITIN [Concomitant]
     Active Substance: LORATADINE
  9. METOPROLOL SUCCINATE [Concomitant]
     Active Substance: METOPROLOL SUCCINATE
  10. REFRESH P.M. [Concomitant]
     Active Substance: MINERAL OIL\PETROLATUM
  11. MIEBO [Concomitant]
     Active Substance: PERFLUOROHEXYLOCTANE

REACTIONS (7)
  - Cerebrovascular accident [Unknown]
  - Seizure [Recovered/Resolved]
  - Wrong technique in product usage process [Unknown]
  - Vision blurred [Not Recovered/Not Resolved]
  - Asthenia [Unknown]
  - Gait disturbance [Unknown]
  - Product dose omission issue [Unknown]

NARRATIVE: CASE EVENT DATE: 20241010
